FAERS Safety Report 11709210 (Version 1)
Quarter: 2015Q4

REPORT INFORMATION
  Report Type: Spontaneous
  Country: US (occurrence: US)
  Receive Date: 20151104
  Receipt Date: 20151104
  Transmission Date: 20160304
  Serious: No
  Sender: FDA-Public Use
  Company Number: US-ELI_LILLY_AND_COMPANY-US201109000510

PATIENT
  Sex: Female
  Weight: 39.91 kg

DRUGS (1)
  1. FORTEO [Suspect]
     Active Substance: TERIPARATIDE
     Indication: OSTEOPOROSIS
     Dosage: 20 UG, QD
     Route: 065
     Dates: start: 20110802, end: 20110812

REACTIONS (16)
  - Chest discomfort [Unknown]
  - Fungal infection [Unknown]
  - Feeling cold [Unknown]
  - Contusion [Unknown]
  - Nausea [Unknown]
  - Staphylococcal infection [Unknown]
  - Bacterial infection [Unknown]
  - Injection site erythema [Unknown]
  - Headache [Unknown]
  - Arthralgia [Unknown]
  - Injection site bruising [Unknown]
  - Malaise [Unknown]
  - Pain in extremity [Unknown]
  - Dyspnoea [Unknown]
  - Lung infection [Unknown]
  - Eating disorder [Unknown]
